FAERS Safety Report 8884740 (Version 1)
Quarter: 2012Q4

REPORT INFORMATION
  Report Type: 
  Country: US (occurrence: US)
  Receive Date: 20121102
  Receipt Date: 20121102
  Transmission Date: 20130627
  Serious: Yes (Other)
  Sender: FDA-Public Use
  Company Number: US-BAYER-2012-112476

PATIENT
  Age: 84 Year
  Sex: Female
  Weight: 40.82 kg

DRUGS (4)
  1. ALKA-SELTZER PLUS COLD [Suspect]
     Indication: COUGH
     Dosage: 2 DF, Q4HR
     Route: 048
     Dates: start: 20121020
  2. NEXIUM [Concomitant]
  3. MULTIVITAMINS [Concomitant]
  4. ASPIRIN [Concomitant]

REACTIONS (1)
  - Swollen tongue [Recovered/Resolved]
